FAERS Safety Report 16662353 (Version 2)
Quarter: 2020Q1

REPORT INFORMATION
  Report Type: Report from Study
  Country: US (occurrence: US)
  Receive Date: 20190802
  Receipt Date: 20200129
  Transmission Date: 20200409
  Serious: No
  Sender: FDA-Public Use
  Company Number: US-EXELIXIS-CABO-18017859

PATIENT
  Age: 72 Year
  Sex: Female

DRUGS (2)
  1. CABOMETYX [Suspect]
     Active Substance: CABOZANTINIB S-MALATE
     Indication: RENAL CANCER
     Dosage: 60 MG, QD
     Route: 048
     Dates: start: 20180901, end: 2018
  2. CABOMETYX [Suspect]
     Active Substance: CABOZANTINIB S-MALATE
     Dosage: 40 MG, QD
     Route: 048
     Dates: start: 2018

REACTIONS (12)
  - Rash [Unknown]
  - Diarrhoea [Unknown]
  - Trigger finger [Unknown]
  - Skin ulcer [Unknown]
  - Headache [Unknown]
  - Paranasal sinus hypersecretion [Unknown]
  - Hair colour changes [Unknown]
  - Gingival bleeding [Unknown]
  - Chills [Unknown]
  - Alopecia [Unknown]
  - Sneezing [Unknown]
  - Dysgeusia [Unknown]

NARRATIVE: CASE EVENT DATE: 201812
